FAERS Safety Report 13560386 (Version 1)
Quarter: 2017Q2

REPORT INFORMATION
  Report Type: Report from Study
  Country: DE (occurrence: DE)
  Receive Date: 20170518
  Receipt Date: 20170518
  Transmission Date: 20170830
  Serious: Yes (Death, Life-Threatening, Hospitalization)
  Sender: FDA-Public Use
  Company Number: PHHO2017DE008070

PATIENT
  Age: 67 Year
  Sex: Male
  Weight: 74 kg

DRUGS (13)
  1. ACC [Concomitant]
     Active Substance: ACETYLCYSTEINE
     Indication: PRODUCT USED FOR UNKNOWN INDICATION
     Dosage: 600 MG, QD
     Route: 048
     Dates: start: 20170503, end: 20170507
  2. VITAMIN K [Concomitant]
     Active Substance: PHYTONADIONE
     Indication: THROMBOSIS
     Dosage: 1 DF (AMP), QD
     Route: 042
     Dates: start: 20170510, end: 20170510
  3. MIDOSTAURIN [Suspect]
     Active Substance: MIDOSTAURIN
     Indication: ACUTE MYELOID LEUKAEMIA
     Dosage: 50 MG, BID
     Route: 048
     Dates: start: 20170411, end: 20170503
  4. CYTARABINE. [Suspect]
     Active Substance: CYTARABINE
     Indication: ACUTE MYELOID LEUKAEMIA
     Dosage: 402 MG, QD
     Route: 042
     Dates: start: 20170403, end: 20170410
  5. LASIX [Concomitant]
     Active Substance: FUROSEMIDE
     Indication: PLEURAL EFFUSION
     Dosage: 40 MG, BID
     Route: 042
     Dates: start: 20170429, end: 20170509
  6. RINGER [Concomitant]
     Indication: HYPOKALAEMIA
     Dosage: 1 LIT + 40 MMOL
     Route: 065
     Dates: start: 20170505, end: 20170507
  7. KCL [Concomitant]
     Active Substance: POTASSIUM CHLORIDE
     Indication: HYPOKALAEMIA
     Dosage: 1 LIT + 40 MMOL
     Route: 065
     Dates: start: 20170505, end: 20170507
  8. CANCIDAS [Concomitant]
     Active Substance: CASPOFUNGIN ACETATE
     Indication: C-REACTIVE PROTEIN INCREASED
     Dosage: 50 MG, QD
     Route: 042
     Dates: start: 20170507, end: 20170507
  9. DAUNORUBICIN [Suspect]
     Active Substance: DAUNORUBICIN
     Indication: ACUTE MYELOID LEUKAEMIA
     Dosage: 121 MG, QD
     Route: 042
     Dates: start: 20170403, end: 20170405
  10. GRANOCYTE [Concomitant]
     Active Substance: LENOGRASTIM
     Indication: NEUTROPENIA
     Dosage: 34 IE, QD
     Route: 042
     Dates: start: 20170509
  11. TARGOCID [Concomitant]
     Active Substance: TEICOPLANIN
     Indication: C-REACTIVE PROTEIN INCREASED
     Dosage: 400 MG, QD
     Route: 042
     Dates: start: 20170503, end: 20170507
  12. MELPERON [Concomitant]
     Active Substance: MELPERONE
     Indication: RESTLESSNESS
     Dosage: 5 ML, QD
     Route: 048
     Dates: start: 20170509, end: 20170509
  13. MERONEM [Concomitant]
     Active Substance: MEROPENEM
     Indication: C-REACTIVE PROTEIN INCREASED
     Dosage: 1 G, TID
     Route: 042
     Dates: start: 20170503, end: 20170507

REACTIONS (4)
  - Sepsis [Fatal]
  - Nodal arrhythmia [Not Recovered/Not Resolved]
  - Arrhythmia supraventricular [Not Recovered/Not Resolved]
  - Atrial fibrillation [Not Recovered/Not Resolved]

NARRATIVE: CASE EVENT DATE: 20170502
